FAERS Safety Report 12062557 (Version 1)
Quarter: 2016Q1

REPORT INFORMATION
  Report Type: Spontaneous
  Country: None (occurrence: US)
  Receive Date: 20160210
  Receipt Date: 20160210
  Transmission Date: 20160526
  Serious: No
  Sender: FDA-Public Use
  Company Number: US-ALLERGAN-1504536US

PATIENT
  Sex: Female

DRUGS (2)
  1. BOTOX [Suspect]
     Active Substance: ONABOTULINUMTOXINA
     Indication: MUSCLE SPASTICITY
     Dosage: 900 UNITS, SINGLE
     Route: 030
     Dates: start: 201502, end: 201502
  2. BOTOX [Suspect]
     Active Substance: ONABOTULINUMTOXINA
     Dosage: 900 UNITS, SINGLE
     Route: 030
     Dates: start: 201411, end: 201411

REACTIONS (2)
  - Muscular weakness [Not Recovered/Not Resolved]
  - Off label use [Unknown]
